FAERS Safety Report 16189632 (Version 2)
Quarter: 2019Q2

REPORT INFORMATION
  Report Type: Spontaneous
  Country: FR (occurrence: FR)
  Receive Date: 20190412
  Receipt Date: 20190515
  Transmission Date: 20190711
  Serious: Yes (Disabling, Other)
  Sender: FDA-Public Use
  Company Number: FR-JNJFOC-20190417991

PATIENT
  Age: 63 Year
  Sex: Male
  Weight: 143 kg

DRUGS (9)
  1. XARELTO [Suspect]
     Active Substance: RIVAROXABAN
     Indication: CEREBROVASCULAR ACCIDENT PROPHYLAXIS
     Route: 048
  2. EPLERENONE. [Concomitant]
     Active Substance: EPLERENONE
     Route: 065
  3. BISOPROLOL [Concomitant]
     Active Substance: BISOPROLOL
     Route: 065
  4. SYMBICORT [Concomitant]
     Active Substance: BUDESONIDE\FORMOTEROL FUMARATE DIHYDRATE
     Route: 065
  5. PERINDOPRIL [Concomitant]
     Active Substance: PERINDOPRIL
     Route: 065
  6. DIFFU K [Concomitant]
     Active Substance: POTASSIUM CHLORIDE
     Route: 065
  7. LASILIX [Concomitant]
     Active Substance: FUROSEMIDE
     Route: 065
  8. ALPRAZOLAM. [Concomitant]
     Active Substance: ALPRAZOLAM
     Route: 065
  9. FLUOXETINE [Concomitant]
     Active Substance: FLUOXETINE HYDROCHLORIDE
     Route: 065

REACTIONS (12)
  - Gastrointestinal haemorrhage [Recovered/Resolved]
  - Cyst removal [Recovered/Resolved]
  - Cerebral haemorrhage [Not Recovered/Not Resolved]
  - Acute coronary syndrome [Recovered/Resolved]
  - Nervous system disorder [Unknown]
  - Oesophageal ulcer [Unknown]
  - Cyst [Unknown]
  - Ischaemic stroke [Not Recovered/Not Resolved]
  - Haemorrhage [Unknown]
  - Tremor [Unknown]
  - Loss of consciousness [Recovered/Resolved with Sequelae]
  - Impaired healing [Unknown]

NARRATIVE: CASE EVENT DATE: 20170520
